FAERS Safety Report 19245238 (Version 1)
Quarter: 2021Q2

REPORT INFORMATION
  Report Type: Spontaneous
  Country: US (occurrence: US)
  Receive Date: 20210512
  Receipt Date: 20210512
  Transmission Date: 20210717
  Serious: Yes (Hospitalization, Other)
  Sender: FDA-Public Use
  Company Number: US-AMGEN INC.-USASP2021070812

PATIENT
  Age: 40 Year
  Sex: Female

DRUGS (21)
  1. XULANE [Concomitant]
     Active Substance: ETHINYL ESTRADIOL\NORELGESTROMIN
     Dosage: 150?35 MCG/24HR PATCH WEEKLY, SIG: 1 PATCH TO SKIN OFF I WEEK THEN REPEAT ON THE SAME DAY EVERY WEEK
     Route: 062
  2. CYCLOBENZAPRINE HCL [Concomitant]
     Active Substance: CYCLOBENZAPRINE HYDROCHLORIDE
     Dosage: (10 MG TABLET, SIG: 1 TABLET AS NEEDED ORALLY BID)
     Route: 048
  3. CRESTOR [Concomitant]
     Active Substance: ROSUVASTATIN CALCIUM
     Dosage: 5 MILLIGRAM (1 TABLET ORALLY ONCE A DAY)
     Route: 048
  4. LEVOTHYROXINE SODIUM. [Concomitant]
     Active Substance: LEVOTHYROXINE SODIUM
     Dosage: 50 UNK (1 TABLET ON AN EMPTY STOMACH IN THE MORNING ORALLY ONCE A DAY)
     Route: 048
  5. NEXIUM [ESOMEPRAZOLE MAGNESIUM TRIHYDRATE] [Concomitant]
     Dosage: (10 MG PACKET, SIG: 1 CAPSULE ORALLY ONCE A DAY)
     Route: 048
  6. VENTOLIN HFA [Concomitant]
     Active Substance: ALBUTEROL SULFATE
     Dosage: (2 PUFFS AS NEEDED INHALATION EVERY 6 HRS)
  7. ALLEGRA [Concomitant]
     Active Substance: FEXOFENADINE HYDROCHLORIDE
     Dosage: 180 MILLIGRAM, QD (1 TABLET AS NEEDED ORALLY ONCE A DAY)
     Route: 048
  8. CABERGOLINE. [Concomitant]
     Active Substance: CABERGOLINE
     Dosage: 0.5 MILLIGRAM (1 TABLET ORALLY TWICE A WEEK)
     Route: 048
  9. PROZAC [Concomitant]
     Active Substance: FLUOXETINE HYDROCHLORIDE
     Dosage: 60 MILLIGRAM (CAPSULE IN THE MORNING ORALLY ONCE A DAY)
     Route: 048
  10. MELATONIN [Concomitant]
     Active Substance: MELATONIN
     Dosage: 10 MILLIGRAM
     Route: 048
  11. NURTEC ODT [Concomitant]
     Active Substance: RIMEGEPANT SULFATE
     Indication: HEADACHE
     Dosage: 75 MILLIGRAM (1 TABLET AT ONSET OF HEADACHE PO MAY REPEAT ONCE AFTER 24 HOURS IF NEEDED)
     Route: 048
     Dates: start: 20210112
  12. PHENERGAN [Concomitant]
     Active Substance: PROMETHAZINE HYDROCHLORIDE
     Indication: NAUSEA
     Dosage: 25 MILLIGRAM (1 TABLET Q 6 HOURS PRN FOR NAUSEA)
     Route: 065
  13. QUDEXY ER [Concomitant]
     Dosage: (250MG IN AM AND 100MG IN PM ORALLY TWICE A DAY)
     Route: 048
     Dates: start: 20161128
  14. BREO ELLIPTA [Concomitant]
     Active Substance: FLUTICASONE FUROATE\VILANTEROL TRIFENATATE
     Dosage: (200?25 MCG/INH AEROSOL POWDER BREATH ACTIVATED/PUFF INHALATION ONCE A DAY)
  15. WELLBUTRIN XL [Concomitant]
     Active Substance: BUPROPION HYDROCHLORIDE
     Dosage: 300 MILLIGRAM (TABLET WITH 150MG TABLET EVERY MORNING ORALLY)
     Route: 048
  16. QUDEXY XR [Concomitant]
     Active Substance: TOPIRAMATE
     Dosage: 50 MILLIGRAM (1 CAP ALONG WITH  200 MG IN AM ORALLY ONCE A DAY)
     Route: 048
     Dates: start: 20161128
  17. HYDROXYZINE PAMOATE. [Concomitant]
     Active Substance: HYDROXYZINE PAMOATE
     Dosage: 25 MILLIGRAM (I CAPSULE AS NEEDED ORALLY EVERY 8 HRS)
     Route: 048
  18. KLONOPIN [Concomitant]
     Active Substance: CLONAZEPAM
     Dosage: 0.5 MILLIGRAM (2 TABLET ORALLY)
     Route: 048
  19. AIMOVIG [Suspect]
     Active Substance: ERENUMAB-AOOE
     Indication: MIGRAINE
     Dosage: 70 MILLIGRAM, QMO
     Route: 058
     Dates: start: 202101
  20. LYRIC [DIFENIDOL HYDROCHLORIDE] [Concomitant]
     Dosage: 200 MILLIGRAM (1 CAPSULE ORALLY THREE TIME)
     Route: 048
     Dates: start: 20131017
  21. SINGULAIR [Concomitant]
     Active Substance: MONTELUKAST SODIUM
     Dosage: 10 MILLIGRAM, QD
     Route: 048

REACTIONS (1)
  - Seizure [Recovered/Resolved]

NARRATIVE: CASE EVENT DATE: 20210413
